FAERS Safety Report 21582133 (Version 1)
Quarter: 2022Q4

REPORT INFORMATION
  Report Type: Spontaneous
  Country: DK (occurrence: DK)
  Receive Date: 20221111
  Receipt Date: 20221111
  Transmission Date: 20230112
  Serious: Yes (Hospitalization)
  Sender: FDA-Public Use
  Company Number: None

PATIENT
  Age: 74 Year
  Sex: Male

DRUGS (9)
  1. JARDIANCE [Suspect]
     Active Substance: EMPAGLIFLOZIN
     Indication: Type 2 diabetes mellitus
     Route: 048
     Dates: start: 2019, end: 202210
  2. LOSARTAN ^MEDICAL VALLEY^ [Concomitant]
     Indication: Hypertension
     Dates: start: 20180112
  3. SIMVASTATIN ^KRKA^ [Concomitant]
     Indication: Hypercholesterolaemia
     Dates: start: 20171113
  4. METFORMIN ^AUROBINDO^ [Concomitant]
     Indication: Type 2 diabetes mellitus
     Dates: start: 20130406
  5. CARDURAN RETARD [Concomitant]
     Indication: Hypertension
     Dates: start: 20180720
  6. OZEMPIC [Concomitant]
     Active Substance: SEMAGLUTIDE
     Indication: Type 2 diabetes mellitus
     Dates: start: 20201011
  7. OXAZEPAM [Concomitant]
     Active Substance: OXAZEPAM
     Indication: Restlessness
     Dates: start: 20180112
  8. AMLODIPINE BESYLATE [Concomitant]
     Active Substance: AMLODIPINE BESYLATE
     Indication: Hypertension
     Dates: start: 20141029
  9. PINEX [Concomitant]
     Indication: Pain
     Dates: start: 20180212

REACTIONS (1)
  - Acidosis [Recovering/Resolving]

NARRATIVE: CASE EVENT DATE: 20221030
